FAERS Safety Report 11253155 (Version 2)
Quarter: 2015Q3

REPORT INFORMATION
  Report Type: Report from Study
  Country: CA (occurrence: CA)
  Receive Date: 20150709
  Receipt Date: 20150723
  Transmission Date: 20151125
  Serious: Yes (Disabling, Other)
  Sender: FDA-Public Use
  Company Number: CA-ABBVIE-15K-028-1421427-00

PATIENT
  Age: 52 Year
  Sex: Female
  Weight: 79 kg

DRUGS (5)
  1. DIPROSALIC [Concomitant]
     Active Substance: BETAMETHASONE DIPROPIONATE
     Indication: PRODUCT USED FOR UNKNOWN INDICATION
  2. HUMIRA [Suspect]
     Active Substance: ADALIMUMAB
     Route: 058
     Dates: start: 20150409, end: 20150703
  3. GABAPENTIN. [Concomitant]
     Active Substance: GABAPENTIN
     Indication: BACK PAIN
     Dates: start: 20150530, end: 20150630
  4. SORIATANE [Concomitant]
     Active Substance: ACITRETIN
     Indication: PRODUCT USED FOR UNKNOWN INDICATION
     Route: 048
     Dates: start: 20130607
  5. HUMIRA [Suspect]
     Active Substance: ADALIMUMAB
     Indication: PSORIASIS
     Route: 058
     Dates: start: 20120627, end: 20150409

REACTIONS (1)
  - Systemic lupus erythematosus [Recovering/Resolving]

NARRATIVE: CASE EVENT DATE: 20150603
